FAERS Safety Report 4480069-9 (Version None)
Quarter: 2004Q4

REPORT INFORMATION
  Report Type: 
  Country: None (occurrence: None)
  Receive Date: 20041018
  Receipt Date: 20041005
  Transmission Date: 20050328
  Serious: Yes (Hospitalization)
  Sender: FDA-Public Use
  Company Number: 2004075607

PATIENT
  Age: 94 Year
  Sex: Female

DRUGS (11)
  1. ZOLOFT [Suspect]
     Indication: ILL-DEFINED DISORDER
     Dosage: 50 MG (50 MG, 1 IN 1 D), ORAL
     Route: 048
     Dates: start: 20030811, end: 20040901
  2. NEURONTIN [Suspect]
     Indication: ILL-DEFINED DISORDER
     Dosage: ORAL
     Route: 048
  3. OLANZAPINE [Suspect]
     Indication: ILL-DEFINED DISORDER
     Dosage: ORAL
     Route: 048
     Dates: start: 20030630
  4. TOLTERODINE TARTRATE [Suspect]
     Indication: ILL-DEFINED DISORDER
     Dosage: ORAL
     Route: 048
  5. ROFECOXIB [Suspect]
     Indication: ARTHRITIS
     Dates: start: 20040819
  6. ATENOLOL [Concomitant]
  7. MULTIVITAMINS (ASCORBIC ACID/ERGOCALCIFEROL/FOLIC ACID/NICOTINAMIDE/PA [Concomitant]
  8. SENNA FRUIT (SENNA FRUIT) [Concomitant]
  9. DONEPEZIL HCL [Concomitant]
  10. HEMORID FOR WOMEN CREAM (ALOE VERA, PARAFFIN, LIQUID PHENYLEPHRINE HYD [Concomitant]
  11. ALL OTHER THERAPEUTIC PRODUCTS [Concomitant]

REACTIONS (8)
  - ACTIVITIES OF DAILY LIVING IMPAIRED [None]
  - BLOOD PRESSURE INCREASED [None]
  - DYSPHAGIA [None]
  - DYSPNOEA [None]
  - HEART RATE IRREGULAR [None]
  - IMMOBILE [None]
  - PRESCRIBED OVERDOSE [None]
  - WEIGHT DECREASED [None]
